FAERS Safety Report 14547513 (Version 1)
Quarter: 2018Q1

REPORT INFORMATION
  Report Type: Spontaneous
  Country: NL (occurrence: NL)
  Receive Date: 20180219
  Receipt Date: 20180219
  Transmission Date: 20180509
  Serious: Yes (Life-Threatening)
  Sender: FDA-Public Use
  Company Number: PHHY2016NL186094

PATIENT

DRUGS (4)
  1. OXALIPLATIN. [Suspect]
     Active Substance: OXALIPLATIN
     Indication: COLORECTAL CANCER
     Dosage: 85 MG/M2, Q2W
     Route: 042
     Dates: start: 20160729
  2. AVASTIN [Suspect]
     Active Substance: BEVACIZUMAB
     Indication: COLORECTAL CANCER
     Dosage: 5 MG/KG, Q2W
     Route: 042
     Dates: start: 20160729
  3. LEUCOVORIN CALCIUM. [Suspect]
     Active Substance: LEUCOVORIN CALCIUM
     Indication: COLORECTAL CANCER
     Dosage: 400 MG/M2, Q2W
     Route: 042
     Dates: start: 20160729
  4. 5-FLUOROURACIL [Suspect]
     Active Substance: FLUOROURACIL
     Indication: COLORECTAL CANCER
     Dosage: 2400 MG/M2, Q2W
     Route: 042
     Dates: start: 20160729

REACTIONS (2)
  - Sepsis [Recovering/Resolving]
  - Gastrointestinal anastomotic leak [Recovering/Resolving]

NARRATIVE: CASE EVENT DATE: 20161031
